FAERS Safety Report 15500603 (Version 1)
Quarter: 2018Q4

REPORT INFORMATION
  Report Type: Spontaneous
  Country: US (occurrence: US)
  Receive Date: 20181015
  Receipt Date: 20181015
  Transmission Date: 20190205
  Serious: Yes (Other)
  Sender: FDA-Public Use
  Company Number: None

PATIENT
  Age: 54 Year
  Sex: Female
  Weight: 63 kg

DRUGS (13)
  1. LEVOTHYROXINE GENERIC FOR SYNTHROID [Suspect]
     Active Substance: LEVOTHYROXINE
     Indication: HYPOTHYROIDISM
     Dosage: ?          QUANTITY:1 TABLET(S);?
     Route: 048
     Dates: start: 20010101, end: 20010107
  2. DAILY VITAMINS [Concomitant]
  3. SYNTHROID [Concomitant]
     Active Substance: LEVOTHYROXINE SODIUM
  4. TYLENOL [Concomitant]
     Active Substance: ACETAMINOPHEN
  5. PAXIL [Concomitant]
     Active Substance: PAROXETINE HYDROCHLORIDE
  6. CALICUM [Concomitant]
  7. YASMIN [Concomitant]
     Active Substance: DROSPIRENONE\ETHINYL ESTRADIOL
  8. BUSPAR [Concomitant]
     Active Substance: BUSPIRONE HYDROCHLORIDE
  9. OMPERZOLE [Concomitant]
  10. NASAL SPRAY [Concomitant]
     Active Substance: UNSPECIFIED INGREDIENT
  11. MAGNESIUM [Concomitant]
     Active Substance: MAGNESIUM
  12. ALLERGY [Concomitant]
     Active Substance: UNSPECIFIED INGREDIENT
  13. ASMANEX [Concomitant]
     Active Substance: MOMETASONE FUROATE

REACTIONS (7)
  - Allergic reaction to excipient [None]
  - Feeling abnormal [None]
  - Dizziness [None]
  - Disorientation [None]
  - Therapy cessation [None]
  - Disturbance in attention [None]
  - Coordination abnormal [None]

NARRATIVE: CASE EVENT DATE: 20110202
